FAERS Safety Report 15431727 (Version 1)
Quarter: 2018Q3

REPORT INFORMATION
  Report Type: Spontaneous
  Country: CA (occurrence: CA)
  Receive Date: 20180926
  Receipt Date: 20180926
  Transmission Date: 20181010
  Serious: Yes (Other)
  Sender: FDA-Public Use
  Company Number: CA-MYLANLABS-2018M1069927

PATIENT
  Age: 22 Year
  Sex: Male

DRUGS (1)
  1. MYLAN?PANTOPRAZOLE T [Suspect]
     Active Substance: PANTOPRAZOLE
     Indication: GASTROOESOPHAGEAL REFLUX DISEASE
     Dosage: 40 MG, QD
     Route: 048

REACTIONS (6)
  - Dry mouth [Recovering/Resolving]
  - Dyspepsia [Recovering/Resolving]
  - Dysphagia [Recovering/Resolving]
  - Product substitution issue [Recovering/Resolving]
  - Drug ineffective [Recovering/Resolving]
  - Sensation of foreign body [Recovering/Resolving]
